FAERS Safety Report 9657627 (Version 1)
Quarter: 2013Q4

REPORT INFORMATION
  Report Type: Spontaneous
  Country: US (occurrence: US)
  Receive Date: 20131030
  Receipt Date: 20131030
  Transmission Date: 20140711
  Serious: No
  Sender: FDA-Public Use
  Company Number: US-ENDO PHARMACEUTICALS INC.-HCDA20120038

PATIENT
  Sex: Male

DRUGS (3)
  1. HYDROCODONE/ACETAMINOPHEN 10MG/325MG [Suspect]
     Indication: NECK PAIN
     Dosage: 60 MG/1950 MG
     Route: 048
     Dates: start: 1993
  2. HYDROCODONE/ACETAMINOPHEN 10MG/325MG [Suspect]
     Indication: ARTHRALGIA
     Dosage: 40 MG/1300 MG
     Route: 048
     Dates: end: 201204
  3. HYDROCODONE/ACETAMINOPHEN 10MG/325MG [Suspect]
     Indication: ARTHRITIS

REACTIONS (1)
  - Drug ineffective [Not Recovered/Not Resolved]
